FAERS Safety Report 21241695 (Version 2)
Quarter: 2022Q3

REPORT INFORMATION
  Report Type: Spontaneous
  Country: US (occurrence: US)
  Receive Date: 20220823
  Receipt Date: 20220927
  Transmission Date: 20221027
  Serious: Yes (Other)
  Sender: FDA-Public Use
  Company Number: US-NOVOPROD-950433

PATIENT
  Age: 60 Year
  Sex: Female

DRUGS (1)
  1. SAXENDA [Suspect]
     Active Substance: LIRAGLUTIDE
     Indication: Weight decreased
     Dosage: 0.6 MG, QD
     Route: 058
     Dates: start: 20220701, end: 20220801

REACTIONS (9)
  - Haematochezia [Recovered/Resolved]
  - Product contamination microbial [Unknown]
  - Fibrocystic breast disease [Not Recovered/Not Resolved]
  - Breast pain [Not Recovered/Not Resolved]
  - Haemorrhoids [Recovered/Resolved]
  - Abdominal distension [Recovered/Resolved]
  - Abdominal pain upper [Recovered/Resolved]
  - Constipation [Recovered/Resolved]
  - Suspected counterfeit product [Recovered/Resolved]

NARRATIVE: CASE EVENT DATE: 20220701
